FAERS Safety Report 22624496 (Version 1)
Quarter: 2023Q2

REPORT INFORMATION
  Report Type: Spontaneous
  Country: GB (occurrence: GB)
  Receive Date: 20230621
  Receipt Date: 20230621
  Transmission Date: 20230722
  Serious: Yes (Hospitalization)
  Sender: FDA-Public Use
  Company Number: None

PATIENT
  Age: 62 Year
  Sex: Male

DRUGS (14)
  1. OMEPRAZOLE [Suspect]
     Active Substance: OMEPRAZOLE
     Dosage: ONE TO BE TAKEN EACH DAY
  2. AMLODIPINE [Concomitant]
     Active Substance: AMLODIPINE BESYLATE
     Dosage: ONE TO BE TAKEN EACH DAY
  3. AMOXICILLIN [Concomitant]
     Active Substance: AMOXICILLIN
     Dosage: ONE TO BE TAKEN THREE TIMES A DAY
     Dates: start: 20221221
  4. ATENOLOL [Concomitant]
     Active Substance: ATENOLOL
     Dosage: ONE TO BE TAKEN EACH DAY
  5. ATORVASTATIN [Concomitant]
     Active Substance: ATORVASTATIN
  6. DOXYCYCLINE [Concomitant]
     Active Substance: DOXYCYCLINE
     Dosage: TWO TO BE TAKEN ON THE FIRST DAY --ONE TO BE TAKE
     Dates: start: 20221220
  7. FUROSEMIDE [Concomitant]
     Active Substance: FUROSEMIDE
     Dosage: ONE TO BE TAKEN EACH MORNING
  8. IBUPROFEN [Concomitant]
     Active Substance: IBUPROFEN
  9. METFORMIN [Concomitant]
     Active Substance: METFORMIN HYDROCHLORIDE
     Dosage: ONE TO BE TAKEN TWICE A DAY MORNING AND NIGHT
  10. ACETAMINOPHEN [Concomitant]
     Active Substance: ACETAMINOPHEN
  11. PERINDOPRIL [Concomitant]
     Active Substance: PERINDOPRIL
  12. SILDENAFIL [Concomitant]
     Active Substance: SILDENAFIL
     Dosage: ONE TO BE TAKEN AS DIRECTED
  13. Peptac liquid aniseed [Concomitant]
     Dosage: TO BE TAKEN AFTER MEALS AND AT BEDTIME
  14. Ultrabase cream [Concomitant]
     Dosage: APPLY 3-4 TIMES A DAY

REACTIONS (1)
  - Electrolyte imbalance [Recovered/Resolved]
